FAERS Safety Report 4887049-X (Version None)
Quarter: 2006Q1

REPORT INFORMATION
  Report Type: 
  Country: None (occurrence: None)
  Receive Date: 20060118
  Receipt Date: 20060110
  Transmission Date: 20060701
  Serious: Yes (Other)
  Sender: FDA-Public Use
  Company Number: 006393

PATIENT
  Sex: Female

DRUGS (2)
  1. CLARAVIS [Suspect]
     Dosage: SEE IMAGE, ORAL
     Route: 048
     Dates: end: 20051031
  2. CLARAVIS [Suspect]
     Dosage: SEE IMAGE, ORAL
     Route: 048
     Dates: start: 20051217, end: 20051219

REACTIONS (2)
  - DRUG EXPOSURE DURING PREGNANCY [None]
  - PREGNANCY [None]
